FAERS Safety Report 24648436 (Version 1)
Quarter: 2024Q4

REPORT INFORMATION
  Report Type: Spontaneous
  Country: JP (occurrence: JP)
  Receive Date: 20241121
  Receipt Date: 20241121
  Transmission Date: 20250114
  Serious: Yes (Other)
  Sender: UCB
  Company Number: JP-UCBJ-CD202411183UCBPHAPROD

PATIENT
  Age: 6 Decade
  Sex: Male

DRUGS (5)
  1. LEVETIRACETAM [Suspect]
     Active Substance: LEVETIRACETAM
     Indication: Temporal lobe epilepsy
     Dosage: 1500 MILLIGRAM
     Route: 048
  2. PERAMPANEL [Concomitant]
     Active Substance: PERAMPANEL
     Indication: Product used for unknown indication
     Dosage: 6 MILLIGRAM
  3. PERAMPANEL [Concomitant]
     Active Substance: PERAMPANEL
     Route: 065
  4. ESZOPICLONE [Concomitant]
     Active Substance: ESZOPICLONE
     Indication: Product used for unknown indication
  5. CLONAZEPAM [Concomitant]
     Active Substance: CLONAZEPAM
     Indication: Product used for unknown indication

REACTIONS (3)
  - Epilepsy [Recovered/Resolved]
  - Irritability [Unknown]
  - Delusion [Unknown]

NARRATIVE: CASE EVENT DATE: 20200101
